FAERS Safety Report 5782092-0 (Version None)
Quarter: 2008Q2

REPORT INFORMATION
  Report Type: 
  Country: None (occurrence: None)
  Receive Date: 20080623
  Receipt Date: 20080610
  Transmission Date: 20081010
  Serious: Yes (Hospitalization)
  Sender: FDA-Public Use
  Company Number: NL-ROCHE-570040

PATIENT
  Sex: Male
  Weight: 61 kg

DRUGS (3)
  1. XELODA [Suspect]
     Route: 048
     Dates: start: 20080514, end: 20080519
  2. CISPLATIN [Concomitant]
     Route: 042
     Dates: start: 20080514, end: 20080514
  3. EPIRUBICIN [Concomitant]
     Route: 042
     Dates: start: 20080514, end: 20080514

REACTIONS (1)
  - REVERSIBLE POSTERIOR LEUKOENCEPHALOPATHY SYNDROME [None]
